FAERS Safety Report 5776288-1 (Version None)
Quarter: 2008Q2

REPORT INFORMATION
  Report Type: 
  Country: None (occurrence: None)
  Receive Date: 20080617
  Receipt Date: 20080617
  Transmission Date: 20081010
  Serious: Yes (Hospitalization)
  Sender: FDA-Public Use
  Company Number: None

PATIENT
  Sex: Male
  Weight: 89.3586 kg

DRUGS (19)
  1. ADENOSINE [Suspect]
     Indication: CHEST PAIN
     Dosage: 75.6MG OVER 4 MINUTES IV
     Route: 042
     Dates: start: 20080612
  2. ACTOS [Concomitant]
  3. ASTELIN [Concomitant]
  4. ALBUTEROL [Concomitant]
  5. BUMEX [Concomitant]
  6. CLARINEX [Concomitant]
  7. COMBIVENT [Concomitant]
  8. COREG [Concomitant]
  9. DIOVAN [Concomitant]
  10. DURATUSS [Concomitant]
  11. FLONASE [Concomitant]
  12. FLUPHENAZINE [Concomitant]
  13. KLOR-CON [Concomitant]
  14. LEXAPRO [Concomitant]
  15. LIPITOR [Concomitant]
  16. METFORMIN [Concomitant]
  17. NEXIUM [Concomitant]
  18. PULMICORT RESPULES [Concomitant]
  19. SPIRIVA [Concomitant]

REACTIONS (6)
  - BRONCHOSPASM [None]
  - DYSPNOEA [None]
  - HYPERCAPNIA [None]
  - HYPOXIA [None]
  - LOSS OF CONSCIOUSNESS [None]
  - RESPIRATORY ARREST [None]
